FAERS Safety Report 20376474 (Version 1)
Quarter: 2022Q1

REPORT INFORMATION
  Report Type: Spontaneous
  Country: JP (occurrence: JP)
  Receive Date: 20220125
  Receipt Date: 20220125
  Transmission Date: 20220423
  Serious: Yes (Other)
  Sender: FDA-Public Use
  Company Number: JP-BRISTOL-MYERS SQUIBB COMPANY-BMS-2018-035667

PATIENT
  Age: 9 Decade
  Sex: Male

DRUGS (2)
  1. SPRYCEL [Suspect]
     Active Substance: DASATINIB
     Indication: Chronic myeloid leukaemia
     Dosage: 50 MILLIGRAM
     Route: 048
     Dates: start: 201703, end: 201705
  2. SPRYCEL [Suspect]
     Active Substance: DASATINIB
     Dosage: 20 MILLIGRAM
     Route: 048
     Dates: start: 201802

REACTIONS (9)
  - Dermatitis exfoliative generalised [Unknown]
  - Dyspnoea [Unknown]
  - Pain in extremity [Unknown]
  - Eyelid oedema [Unknown]
  - Oedema peripheral [Unknown]
  - Hiccups [Unknown]
  - Nausea [Unknown]
  - Malaise [Unknown]
  - Stomatitis [Unknown]

NARRATIVE: CASE EVENT DATE: 20170401
